FAERS Safety Report 7646290-3 (Version None)
Quarter: 2011Q3

REPORT INFORMATION
  Report Type: 
  Country: None (occurrence: None)
  Receive Date: 20110801
  Receipt Date: 20110727
  Transmission Date: 20111222
  Serious: No
  Sender: FDA-Public Use
  Company Number: US-BIOGENIDEC-2011BI028278

PATIENT
  Sex: Female

DRUGS (3)
  1. TYSABRI [Suspect]
     Route: 042
     Dates: start: 20050221
  2. TYSABRI [Suspect]
     Route: 042
     Dates: start: 20060828, end: 20070717
  3. TYSABRI [Suspect]
     Indication: MULTIPLE SCLEROSIS
     Route: 042
     Dates: start: 20080130

REACTIONS (1)
  - PNEUMONIA [None]
